FAERS Safety Report 22266658 (Version 3)
Quarter: 2023Q2

REPORT INFORMATION
  Report Type: Spontaneous
  Country: US (occurrence: US)
  Receive Date: 20230428
  Receipt Date: 20230629
  Transmission Date: 20230722
  Serious: Yes (Other)
  Sender: FDA-Public Use
  Company Number: US-BRISTOL-MYERS SQUIBB COMPANY-2023-061252

PATIENT
  Age: 51 Year
  Sex: Male

DRUGS (2)
  1. LENALIDOMIDE [Suspect]
     Active Substance: LENALIDOMIDE
     Indication: Plasma cell myeloma
     Dosage: FREQUENCY: TAKE 1 CAPSULE BY MOUTH DAILY ON
     Route: 048
     Dates: start: 20221214
  2. LENALIDOMIDE [Suspect]
     Active Substance: LENALIDOMIDE
     Dosage: FREQUENCY: TAKE 1 CAPSULE WHOLE BY MOUTH
     Route: 048
     Dates: start: 20230302

REACTIONS (6)
  - Oral disorder [Unknown]
  - Feeding disorder [Unknown]
  - Weight decreased [Unknown]
  - Pain [Unknown]
  - Stomatitis [Unknown]
  - Neuropathy peripheral [Unknown]
